FAERS Safety Report 9305420 (Version 2)
Quarter: 2013Q2

REPORT INFORMATION
  Report Type: Spontaneous
  Country: JP (occurrence: JP)
  Receive Date: 20130523
  Receipt Date: 20130530
  Transmission Date: 20140414
  Serious: Yes (Other)
  Sender: FDA-Public Use
  Company Number: JP-VERTEX PHARMACEUTICALS INC-2013-006287

PATIENT
  Age: 62 Year
  Sex: Male

DRUGS (13)
  1. TELAVIC [Suspect]
     Indication: CHRONIC HEPATITIS C
     Dosage: 2250 MG, QD
     Route: 048
     Dates: start: 20120208, end: 20120501
  2. TELAVIC [Suspect]
     Dosage: 1500 MG, QD
     Route: 048
     Dates: start: 20120502, end: 20120508
  3. RIBAVIRIN [Suspect]
     Indication: HEPATITIS C
     Dosage: 800 MG, UNK
     Route: 048
     Dates: start: 20120229, end: 20120313
  4. RIBAVIRIN [Suspect]
     Dosage: 600 MG, UNK
     Route: 048
     Dates: start: 20120314, end: 20120320
  5. RIBAVIRIN [Suspect]
     Dosage: 200 MG, UNK
     Route: 048
     Dates: start: 20120321, end: 20120619
  6. RIBAVIRIN [Suspect]
     Dosage: 400 MG, UNK
     Route: 048
     Dates: start: 20120620, end: 20120814
  7. PEGINTERFERON ALFA-2B [Suspect]
     Indication: HEPATITIS C
     Dosage: 1.5 ?G/KG, QW
     Route: 058
     Dates: start: 20120228, end: 20120813
  8. ALLERMIST [Concomitant]
     Dosage: UNK, PRN
  9. BEZATOL SR [Concomitant]
     Dosage: 400 MG, UNK
     Route: 048
     Dates: start: 20120403
  10. BEZATOL SR [Concomitant]
     Dosage: 400 MG, UNK
     Route: 048
     Dates: end: 20120814
  11. GASTER [Concomitant]
     Dosage: 20 MG, UNK
     Route: 048
     Dates: start: 20120419, end: 20120814
  12. ALESION [Concomitant]
     Dosage: 20 MG, UNK
     Route: 048
     Dates: end: 20120814
  13. POLARAMINE [Concomitant]
     Dosage: 4 MG, UNK
     Route: 048
     Dates: end: 20120814

REACTIONS (11)
  - Erythema multiforme [Recovered/Resolved]
  - Injection site reaction [Unknown]
  - Blood triglycerides increased [Recovered/Resolved]
  - Papule [Unknown]
  - Hyperuricaemia [Recovered/Resolved]
  - Drug eruption [Recovered/Resolved]
  - Drug eruption [Recovered/Resolved]
  - Pruritus [Unknown]
  - Diarrhoea [Recovered/Resolved]
  - Platelet count decreased [Recovered/Resolved]
  - Haemoglobin decreased [Recovered/Resolved]
